FAERS Safety Report 23118340 (Version 1)
Quarter: 2023Q4

REPORT INFORMATION
  Report Type: Spontaneous
  Country: SI (occurrence: SI)
  Receive Date: 20231028
  Receipt Date: 20231028
  Transmission Date: 20240110
  Serious: Yes (Other)
  Sender: FDA-Public Use
  Company Number: SI-AMGEN-SVNSP2023188352

PATIENT
  Age: 86 Year
  Sex: Female

DRUGS (2)
  1. PROLIA [Suspect]
     Active Substance: DENOSUMAB
     Indication: Osteoporosis
     Dosage: UNK, UNK
     Route: 065
     Dates: start: 20201112
  2. MIRABEGRON [Concomitant]
     Active Substance: MIRABEGRON

REACTIONS (2)
  - Rash erythematous [Unknown]
  - Dermatitis [Unknown]

NARRATIVE: CASE EVENT DATE: 20201117
